FAERS Safety Report 4444499-3 (Version None)
Quarter: 2004Q3

REPORT INFORMATION
  Report Type: 
  Country: None (occurrence: None)
  Receive Date: 20040902
  Receipt Date: 20040818
  Transmission Date: 20050211
  Serious: Yes (Hospitalization)
  Sender: FDA-Public Use
  Company Number: USA040874589

PATIENT
  Age: 78 Year
  Sex: Female

DRUGS (12)
  1. FORTEO [Suspect]
     Indication: OSTEOPOROSIS
     Dates: start: 20040717
  2. DURAGESIC [Concomitant]
  3. LIPITOR [Concomitant]
  4. LORAZEPAM [Concomitant]
  5. ACIPHEX [Concomitant]
  6. TRAMADOL HCL [Concomitant]
  7. METOPROLOL [Concomitant]
  8. ASPIRIN [Concomitant]
  9. CENTRUM [Concomitant]
  10. VITAMIN E [Concomitant]
  11. CALTRATE +D [Concomitant]
  12. VITAMIN C [Concomitant]

REACTIONS (3)
  - MULTIPLE FRACTURES [None]
  - PHARMACEUTICAL PRODUCT COMPLAINT [None]
  - SPINAL FRACTURE [None]
